FAERS Safety Report 20025196 (Version 9)
Quarter: 2024Q3

REPORT INFORMATION
  Report Type: Report from Study
  Country: US (occurrence: US)
  Receive Date: 20211102
  Receipt Date: 20240911
  Transmission Date: 20241017
  Serious: Yes (Hospitalization, Other)
  Sender: TAKEDA
  Company Number: US-TAKEDA-2021TUS065998

PATIENT
  Age: 5 Year
  Sex: Male

DRUGS (19)
  1. TEDUGLUTIDE [Suspect]
     Active Substance: TEDUGLUTIDE
     Indication: Short-bowel syndrome
     Dosage: 0.6 MILLIGRAM, QD
     Route: 042
     Dates: start: 20210216, end: 20210409
  2. TEDUGLUTIDE [Suspect]
     Active Substance: TEDUGLUTIDE
     Indication: Short-bowel syndrome
     Dosage: 0.6 MILLIGRAM, QD
     Route: 042
     Dates: start: 20210216, end: 20210409
  3. TEDUGLUTIDE [Suspect]
     Active Substance: TEDUGLUTIDE
     Indication: Short-bowel syndrome
     Dosage: 0.6 MILLIGRAM, QD
     Route: 042
     Dates: start: 20210216, end: 20210409
  4. TEDUGLUTIDE [Suspect]
     Active Substance: TEDUGLUTIDE
     Indication: Short-bowel syndrome
     Dosage: 0.6 MILLIGRAM, QD
     Route: 042
     Dates: start: 20210216, end: 20210409
  5. ERYTHROMYCIN [Concomitant]
     Active Substance: ERYTHROMYCIN
     Indication: Movement disorder
     Dosage: 40 MILLIGRAM
     Route: 065
     Dates: start: 20210420
  6. ALCOHOL [Concomitant]
     Active Substance: ALCOHOL
     Indication: Vascular device infection
     Dosage: 0.20 MILLILITER
     Route: 042
     Dates: start: 20210420
  7. ZINC OXIDE [Concomitant]
     Active Substance: ZINC OXIDE
     Indication: Dermatitis diaper
     Dosage: UNK
     Route: 061
     Dates: start: 20210420
  8. ALBUTEROL [Concomitant]
     Active Substance: ALBUTEROL
     Indication: Bronchopulmonary dysplasia
     Dosage: 2.5 MICROGRAM, PRN
     Route: 050
     Dates: start: 20180626
  9. FAMOTIDINE [Concomitant]
     Active Substance: FAMOTIDINE
     Indication: Gastrooesophageal reflux disease
     Dosage: 10 MILLIGRAM, QD
     Route: 050
     Dates: start: 20181213
  10. SIMETHICONE (DIMETHICONE) [Concomitant]
     Active Substance: DIMETHICONE
     Indication: Flatulence
     Dosage: 40 MILLIGRAM, QID
     Route: 050
     Dates: start: 20190103
  11. ERGOCALCIFEROL [Concomitant]
     Active Substance: ERGOCALCIFEROL
     Indication: Vitamin supplementation
     Dosage: 1 MILLILITER, QD
     Route: 050
     Dates: start: 20190506
  12. VANCOMYCIN [Concomitant]
     Active Substance: VANCOMYCIN
     Indication: Bacteraemia
     Dosage: 17.5 MILLIGRAM/KILOGRAM, QID
     Route: 042
     Dates: start: 20220201, end: 20220220
  13. VANCOMYCIN [Concomitant]
     Active Substance: VANCOMYCIN
     Indication: Device related sepsis
     Dosage: 17.5 MILLIGRAM/KILOGRAM, QID
     Route: 042
     Dates: start: 20220105, end: 20220108
  14. MICAFUNGIN [Concomitant]
     Active Substance: MICAFUNGIN SODIUM
     Indication: Device related sepsis
     Dosage: 4 MILLIGRAM/KILOGRAM, TID
     Route: 042
     Dates: start: 20220105, end: 20220123
  15. CEFAZOLIN [Concomitant]
     Active Substance: CEFAZOLIN
     Indication: Staphylococcal sepsis
     Dosage: 450 MILLIGRAM, TID
     Route: 042
     Dates: start: 20211221, end: 20211221
  16. CEFAZOLIN [Concomitant]
     Active Substance: CEFAZOLIN
     Indication: Device related sepsis
  17. VALGANCICLOVIR [Concomitant]
     Active Substance: VALGANCICLOVIR
     Indication: Intestinal transplant
     Dosage: 360 MILLIGRAM, QD
     Route: 065
     Dates: start: 20230925
  18. TACROLIMUS [Concomitant]
     Active Substance: TACROLIMUS
     Indication: Gastrointestinal disorder prophylaxis
     Dosage: 1.80 MILLIGRAM, BID
     Route: 048
     Dates: start: 2023, end: 20240221
  19. PROGRAF [Concomitant]
     Active Substance: TACROLIMUS
     Indication: Gastrointestinal disorder prophylaxis
     Dosage: 1 MILLIGRAM, BID
     Route: 048
     Dates: start: 20240222

REACTIONS (2)
  - Vascular device infection [Recovered/Resolved]
  - Seizure [Recovered/Resolved]

NARRATIVE: CASE EVENT DATE: 20210911
